FAERS Safety Report 8221429-X (Version None)
Quarter: 2012Q1

REPORT INFORMATION
  Report Type: 
  Country: None (occurrence: None)
  Receive Date: 20120313
  Receipt Date: 20120305
  Transmission Date: 20120608
  Serious: Yes (Hospitalization)
  Sender: FDA-Public Use
  Company Number: 2012SP001772

PATIENT
  Age: 65 Year
  Sex: Male

DRUGS (6)
  1. RIBAVIRIN [Suspect]
     Indication: PRODUCT USED FOR UNKNOWN INDICATION
     Dosage: 600 MG; QD;
     Dates: end: 20111218
  2. RIBAVIRIN [Suspect]
     Indication: PRODUCT USED FOR UNKNOWN INDICATION
     Dosage: 600 MG; QD;
     Dates: start: 20111221
  3. PEGASYS [Suspect]
     Indication: PRODUCT USED FOR UNKNOWN INDICATION
     Dates: end: 20111218
  4. PEGASYS [Suspect]
     Indication: PRODUCT USED FOR UNKNOWN INDICATION
     Dates: start: 20111221
  5. VICTRELIS [Suspect]
     Indication: HEPATITIS C
     Dates: start: 20111221
  6. VICTRELIS [Suspect]
     Indication: HEPATITIS C
     Dates: start: 20110822, end: 20111218

REACTIONS (3)
  - ANAEMIA [None]
  - WOLFF-PARKINSON-WHITE SYNDROME [None]
  - PULMONARY EMBOLISM [None]
